FAERS Safety Report 5051753-3 (Version None)
Quarter: 2006Q3

REPORT INFORMATION
  Report Type: 
  Country: None (occurrence: None)
  Receive Date: 20060713
  Receipt Date: 20060713
  Transmission Date: 20061208
  Serious: No
  Sender: FDA-Public Use
  Company Number: None

PATIENT
  Sex: Female

DRUGS (11)
  1. TACROLIMUS [Suspect]
     Dosage: 8 MG 2 X/D PO
     Route: 048
  2. PREDNISONE [Concomitant]
  3. TACROLIMUS [Concomitant]
  4. VALGANCICLOVIR HCL [Concomitant]
  5. MYCOPHENOLATE MOFETIL [Concomitant]
  6. COTRIMOXAZOLE [Concomitant]
  7. ATENOLOL [Concomitant]
  8. LUNESTA [Concomitant]
  9. AMLODIPINE [Concomitant]
  10. NIZANTIDINE [Concomitant]
  11. VICODIN [Concomitant]

REACTIONS (5)
  - FLUID INTAKE REDUCED [None]
  - GASTROENTERITIS VIRAL [None]
  - MALAISE [None]
  - MENTAL STATUS CHANGES [None]
  - PANCREATITIS ACUTE [None]
